FAERS Safety Report 10771880 (Version 1)
Quarter: 2015Q1

REPORT INFORMATION
  Report Type: Report from Study
  Country: None (occurrence: US)
  Receive Date: 20150206
  Receipt Date: 20150206
  Transmission Date: 20150721
  Serious: Yes (Hospitalization)
  Sender: FDA-Public Use
  Company Number: US-BIOGEN USA-2014BI037823

PATIENT
  Age: 39 Year
  Sex: Female

DRUGS (7)
  1. HUMALOG [Concomitant]
     Active Substance: INSULIN LISPRO
  2. LYRICA [Concomitant]
     Active Substance: PREGABALIN
  3. ZOFRAN [Concomitant]
     Active Substance: ONDANSETRON HYDROCHLORIDE
  4. TECFIDERA [Suspect]
     Active Substance: DIMETHYL FUMARATE
     Route: 048
     Dates: start: 20131113, end: 20141002
  5. TECFIDERA [Suspect]
     Active Substance: DIMETHYL FUMARATE
     Indication: MULTIPLE SCLEROSIS
     Route: 048
     Dates: start: 20131106, end: 20131113
  6. REGLAN [Concomitant]
     Active Substance: METOCLOPRAMIDE HYDROCHLORIDE
  7. OXYCODONE [Concomitant]
     Active Substance: OXYCODONE

REACTIONS (12)
  - Aphasia [Recovered/Resolved]
  - Vomiting [Recovered/Resolved]
  - Memory impairment [Unknown]
  - Nausea [Recovered/Resolved]
  - Type 1 diabetes mellitus [Recovered/Resolved]
  - Weight decreased [Recovered/Resolved]
  - Diabetic ketoacidosis [Recovered/Resolved]
  - Anaemia [Unknown]
  - Impaired gastric emptying [Recovered/Resolved]
  - Feeding disorder [Recovered/Resolved]
  - Unresponsive to stimuli [Recovered/Resolved]
  - Dehydration [Recovered/Resolved]

NARRATIVE: CASE EVENT DATE: 20131106
